FAERS Safety Report 16145508 (Version 1)
Quarter: 2019Q2

REPORT INFORMATION
  Report Type: Spontaneous
  Country: GB (occurrence: GB)
  Receive Date: 20190402
  Receipt Date: 20190402
  Transmission Date: 20190711
  Serious: Yes (Life-Threatening, Hospitalization, Disabling, Other)
  Sender: FDA-Public Use
  Company Number: GB-ACCORD-117066

PATIENT
  Age: 43 Year
  Sex: Male
  Weight: 107.95 kg

DRUGS (1)
  1. AMITRIPTYLINE [Suspect]
     Active Substance: AMITRIPTYLINE
     Indication: STRESS
     Route: 048
     Dates: start: 20181223, end: 20181223

REACTIONS (2)
  - Suicide attempt [Unknown]
  - Renal failure [Unknown]

NARRATIVE: CASE EVENT DATE: 20190123
